FAERS Safety Report 16591483 (Version 7)
Quarter: 2021Q3

REPORT INFORMATION
  Report Type: Spontaneous
  Country: US (occurrence: US)
  Receive Date: 20190718
  Receipt Date: 20210707
  Transmission Date: 20211014
  Serious: Yes (Other)
  Sender: FDA-Public Use
  Company Number: US-PFIZER INC-2019305793

PATIENT
  Age: 69 Year
  Sex: Male

DRUGS (2)
  1. LYRICA [Suspect]
     Active Substance: PREGABALIN
     Dosage: UNK
  2. LYRICA [Suspect]
     Active Substance: PREGABALIN
     Dosage: UNK(MORE THAT TWO A DAY/SCHEDULED 75 DAYS/ONE TAB BEFORE BED TIME NOT ALL OF THEM DURING THE DAY)

REACTIONS (4)
  - Drug dependence [Unknown]
  - Malaise [Unknown]
  - Insomnia [Unknown]
  - Neuralgia [Unknown]
